FAERS Safety Report 5289423-9 (Version None)
Quarter: 2007Q2

REPORT INFORMATION
  Report Type: 
  Country: None (occurrence: None)
  Receive Date: 20070406
  Receipt Date: 20070329
  Transmission Date: 20071010
  Serious: Yes (Death, Hospitalization)
  Sender: FDA-Public Use
  Company Number: BE-AMGEN-UK205844

PATIENT
  Sex: Female

DRUGS (15)
  1. PALIFERMIN [Suspect]
     Indication: DRUG USE FOR UNKNOWN INDICATION
     Route: 042
     Dates: start: 20060731, end: 20060802
  2. SUFENTA [Concomitant]
     Route: 041
     Dates: start: 20060930, end: 20061014
  3. DIPRIVAN [Concomitant]
     Route: 041
     Dates: start: 20061004, end: 20061014
  4. MIDAZOLAM HCL [Concomitant]
     Route: 041
     Dates: start: 20060930, end: 20061014
  5. INSULIN [Concomitant]
     Route: 041
     Dates: start: 20060930, end: 20061014
  6. DOBUTREX [Concomitant]
     Route: 041
     Dates: start: 20061003, end: 20061014
  7. LEVOPHED [Concomitant]
     Route: 041
     Dates: start: 20061005, end: 20061014
  8. CLEXANE [Concomitant]
     Route: 040
     Dates: start: 20061004, end: 20061014
  9. MERONEM [Concomitant]
     Route: 040
     Dates: start: 20060930, end: 20061014
  10. BACTRIM [Concomitant]
     Route: 040
     Dates: start: 20060930, end: 20061014
  11. LASIX [Concomitant]
     Route: 040
     Dates: start: 20061011
  12. LEDERVORIN [Concomitant]
     Route: 040
     Dates: start: 20060930, end: 20061014
  13. ERYTHROCINE [Concomitant]
     Route: 040
     Dates: start: 20061007, end: 20061014
  14. LOSEC [Concomitant]
     Route: 040
     Dates: start: 20060930, end: 20061005
  15. OMEPRAZOLE [Concomitant]
     Route: 048
     Dates: start: 20061005, end: 20061014

REACTIONS (8)
  - ACUTE RESPIRATORY DISTRESS SYNDROME [None]
  - BAROTRAUMA [None]
  - C-REACTIVE PROTEIN INCREASED [None]
  - CARDIAC FAILURE [None]
  - CATHETER SITE INFECTION [None]
  - HYPOXIA [None]
  - PNEUMOTHORAX [None]
  - STAPHYLOCOCCAL SEPSIS [None]
